FAERS Safety Report 6059193-5 (Version None)
Quarter: 2009Q1

REPORT INFORMATION
  Report Type: 
  Country: None (occurrence: None)
  Receive Date: 20090128
  Receipt Date: 20090126
  Transmission Date: 20090719
  Serious: Yes (Other)
  Sender: FDA-Public Use
  Company Number: GXKR2009DE01085

PATIENT
  Age: 30 Year
  Sex: Female

DRUGS (3)
  1. AMOXICILLIN [Suspect]
     Dosage: 500 MG, TID, ORAL
     Route: 048
  2. METRONIDAZOLE [Suspect]
     Indication: PERIODONTAL DISEASE
     Dosage: 400 MG, TID, ORAL
     Route: 048
  3. THYRONAJOD (LEVOTHYROXINE SODIUM, POTASSIUM IODIDE) [Concomitant]

REACTIONS (3)
  - DIARRHOEA [None]
  - EAR PAIN [None]
  - PARAESTHESIA [None]
